FAERS Safety Report 9406920 (Version 1)
Quarter: 2013Q3

REPORT INFORMATION
  Report Type: Spontaneous
  Country: US (occurrence: US)
  Receive Date: 20130718
  Receipt Date: 20130718
  Transmission Date: 20140515
  Serious: No
  Sender: FDA-Public Use
  Company Number: US-PFIZER INC-2013208652

PATIENT
  Age: 58 Year
  Sex: Female
  Weight: 81.63 kg

DRUGS (4)
  1. NEURONTIN [Suspect]
     Dosage: UNK
     Route: 048
     Dates: start: 201307
  2. MAXALT [Concomitant]
     Indication: MIGRAINE
     Dosage: UNK, AS NEEDED
  3. BUTALBITAL [Concomitant]
     Indication: HEADACHE
     Dosage: 10 MG, 1X/DAY
  4. NEURONTIN [Concomitant]
     Dosage: UNK
     Route: 048

REACTIONS (2)
  - Dysgeusia [Unknown]
  - Product taste abnormal [Unknown]
